FAERS Safety Report 12616076 (Version 2)
Quarter: 2016Q3

REPORT INFORMATION
  Report Type: Spontaneous
  Country: IT (occurrence: IT)
  Receive Date: 20160802
  Receipt Date: 20160805
  Transmission Date: 20161109
  Serious: Yes (Other)
  Sender: FDA-Public Use
  Company Number: IT-009507513-1608ITA000971

PATIENT
  Age: 42 Year
  Sex: Female

DRUGS (2)
  1. PEGINTERFERON ALFA-2B [Suspect]
     Active Substance: PEGINTERFERON ALFA-2B
     Indication: HEPATITIS C
     Dosage: 100 MICROGRAM PER WEEK
     Dates: start: 201203, end: 2012
  2. RIBAVIRIN. [Suspect]
     Active Substance: RIBAVIRIN
     Indication: HEPATITIS C
     Dosage: 800 MG/DAY
     Route: 048
     Dates: start: 201203, end: 2012

REACTIONS (2)
  - Hepatitis C [Unknown]
  - Anaemia [Unknown]

NARRATIVE: CASE EVENT DATE: 2013
